FAERS Safety Report 20782221 (Version 1)
Quarter: 2022Q2

REPORT INFORMATION
  Report Type: Spontaneous
  Country: IN (occurrence: IN)
  Receive Date: 20220504
  Receipt Date: 20220504
  Transmission Date: 20220721
  Serious: Yes (Hospitalization, Other)
  Sender: FDA-Public Use
  Company Number: IN-ALEMBIC PHARMACUETICALS LIMITED-2022SCAL000151

PATIENT

DRUGS (1)
  1. TELMISARTAN AND AMLODIPINE [Suspect]
     Active Substance: AMLODIPINE BESYLATE\TELMISARTAN
     Indication: Hypertension
     Dosage: 40/5 MG
     Route: 065

REACTIONS (7)
  - Suicidal ideation [Recovering/Resolving]
  - Depressed level of consciousness [Recovering/Resolving]
  - General physical health deterioration [Recovering/Resolving]
  - Intentional overdose [Recovering/Resolving]
  - Hypotension [Recovering/Resolving]
  - Oliguria [Recovering/Resolving]
  - Acute kidney injury [Recovering/Resolving]
